FAERS Safety Report 5913210-9 (Version None)
Quarter: 2008Q4

REPORT INFORMATION
  Report Type: 
  Country: None (occurrence: None)
  Receive Date: 20081009
  Receipt Date: 20081001
  Transmission Date: 20090506
  Serious: Yes (Other)
  Sender: FDA-Public Use
  Company Number: FR-BAXTER-2007BH005586

PATIENT
  Age: 72 Year
  Sex: Female

DRUGS (2)
  1. GAMMAGARD S/D [Suspect]
     Indication: CHRONIC INFLAMMATORY DEMYELINATING POLYRADICULONEUROPATHY
     Route: 042
  2. TEGELINE [Concomitant]
     Indication: POLYNEUROPATHY

REACTIONS (2)
  - NEUTROPENIA [None]
  - PYREXIA [None]
